FAERS Safety Report 7674485-1 (Version None)
Quarter: 2011Q3

REPORT INFORMATION
  Report Type: 
  Country: None (occurrence: None)
  Receive Date: 20110810
  Receipt Date: 20110727
  Transmission Date: 20111222
  Serious: Yes (Other)
  Sender: FDA-Public Use
  Company Number: PHHY2011BR68226

PATIENT
  Sex: Female

DRUGS (4)
  1. LOSARTAN POTASSIUM [Concomitant]
     Dosage: 50 MG, UNK
  2. ATENOLOL [Concomitant]
     Dosage: 50 MG AT NIGHT
  3. FUROSEMIDE [Concomitant]
     Dosage: 40 MG IN THE MORNING
  4. RASILEZ [Suspect]
     Dosage: 300 MG, UNK

REACTIONS (4)
  - ARRHYTHMIA [None]
  - BLOOD PRESSURE FLUCTUATION [None]
  - FEELING ABNORMAL [None]
  - HEART RATE INCREASED [None]
